FAERS Safety Report 26078356 (Version 1)
Quarter: 2025Q4

REPORT INFORMATION
  Report Type: Spontaneous
  Country: US (occurrence: US)
  Receive Date: 20251122
  Receipt Date: 20251122
  Transmission Date: 20260118
  Serious: Yes (Death, Other)
  Sender: AMGEN
  Company Number: US-AMGEN-USASP2025229498

PATIENT

DRUGS (8)
  1. BLINATUMOMAB [Suspect]
     Active Substance: BLINATUMOMAB
     Indication: B-cell lymphoma refractory
     Dosage: 9 MICROGRAM, QD, ON DAYS 1-7
     Route: 040
  2. BLINATUMOMAB [Suspect]
     Active Substance: BLINATUMOMAB
     Dosage: 28 MICROGRAM, QD, ON DAYS 8-14
     Route: 040
  3. BLINATUMOMAB [Suspect]
     Active Substance: BLINATUMOMAB
     Dosage: 112 MICROGRAM, QD, ON DAYS 15-56
     Route: 040
  4. LENALIDOMIDE [Suspect]
     Active Substance: LENALIDOMIDE
     Indication: B-cell lymphoma refractory
     Dosage: 10 MILLIGRAM, QD, ON DAYS 29-49
     Route: 048
  5. LENALIDOMIDE [Suspect]
     Active Substance: LENALIDOMIDE
     Dosage: 20 MILLIGRAM, QD, ON DAYS 29-49
     Route: 048
  6. LENALIDOMIDE [Suspect]
     Active Substance: LENALIDOMIDE
     Dosage: 20 MILLIGRAM
     Route: 048
  7. DEXAMETHASONE [Concomitant]
     Active Substance: DEXAMETHASONE
     Dosage: 20 MILLIGRAM
     Route: 048
  8. DEXAMETHASONE [Concomitant]
     Active Substance: DEXAMETHASONE
     Dosage: 10 MILLIGRAM
     Route: 040

REACTIONS (41)
  - Death [Fatal]
  - Neutrophil count decreased [Unknown]
  - Lymphocyte count decreased [Unknown]
  - Sepsis [Unknown]
  - Neurotoxicity [Unknown]
  - Tremor [Unknown]
  - Fatigue [Unknown]
  - Anaemia [Unknown]
  - White blood cell count decreased [Unknown]
  - Dysarthria [Unknown]
  - Catheter site infection [Unknown]
  - Pneumonia [Unknown]
  - Ataxia [Unknown]
  - Confusional state [Unknown]
  - Gait disturbance [Unknown]
  - Febrile neutropenia [Unknown]
  - Transaminases increased [Unknown]
  - Encephalopathy [Unknown]
  - Wound infection pseudomonas [Unknown]
  - Systemic inflammatory response syndrome [Unknown]
  - Deep vein thrombosis [Unknown]
  - Hypokalaemia [Unknown]
  - B-cell lymphoma refractory [Unknown]
  - Pyrexia [Unknown]
  - Vomiting [Unknown]
  - Stomatitis [Unknown]
  - Rash maculo-papular [Unknown]
  - Affect lability [Unknown]
  - Diarrhoea [Unknown]
  - Headache [Unknown]
  - Vertigo [Unknown]
  - Dysgeusia [Unknown]
  - Myalgia [Unknown]
  - Platelet count decreased [Unknown]
  - Hypertension [Unknown]
  - Lipase increased [Unknown]
  - Gastrooesophageal reflux disease [Unknown]
  - Pain [Unknown]
  - Therapy partial responder [Unknown]
  - Strongyloidiasis [Unknown]
  - Aphasia [Unknown]
